FAERS Safety Report 7423746-X (Version None)
Quarter: 2011Q2

REPORT INFORMATION
  Report Type: 
  Country: None (occurrence: None)
  Receive Date: 20110407
  Receipt Date: 20110325
  Transmission Date: 20111010
  Serious: Yes (Other)
  Sender: FDA-Public Use
  Company Number: TPA2011A01268

PATIENT

DRUGS (1)
  1. ACTOS [Suspect]
     Dosage: 30 MG; 45 MG

REACTIONS (1)
  - MYOCARDIAL INFARCTION [None]
